FAERS Safety Report 8762221 (Version 1)
Quarter: 2012Q4

REPORT INFORMATION
  Report Type: 
  Country: CN (occurrence: CN)
  Receive Date: 20120830
  Receipt Date: 20120830
  Transmission Date: 20130627
  Serious: Yes (Death)
  Sender: FDA-Public Use
  Company Number: CN-ROCHE-1106266

PATIENT
  Sex: Male
  Weight: 11.5 kg

DRUGS (5)
  1. ROCEPHIN [Suspect]
     Indication: ANTIINFLAMMATORY THERAPY
     Route: 041
     Dates: start: 20090206, end: 20090208
  2. FUSIDIC ACID [Suspect]
     Indication: ANTIINFLAMMATORY THERAPY
     Route: 041
     Dates: start: 20090202, end: 20090207
  3. LATAMOXEF [Suspect]
     Indication: ANTIINFLAMMATORY THERAPY
     Route: 041
     Dates: start: 20090128, end: 20090202
  4. AZITHROMYCIN [Suspect]
     Indication: ANTIINFLAMMATORY THERAPY
     Route: 041
     Dates: start: 20090130, end: 20090204
  5. AZITHROMYCIN [Suspect]
     Route: 041
     Dates: start: 20090207, end: 20090210

REACTIONS (2)
  - Hepatocellular injury [Fatal]
  - Erythema multiforme [Fatal]
